FAERS Safety Report 21053599 (Version 2)
Quarter: 2022Q4

REPORT INFORMATION
  Report Type: Spontaneous
  Country: BR (occurrence: BR)
  Receive Date: 20220707
  Receipt Date: 20221105
  Transmission Date: 20230113
  Serious: Yes (Death)
  Sender: FDA-Public Use
  Company Number: BR-NOVARTISPH-NVSC2022BR154648

PATIENT
  Age: 24 Year
  Sex: Female

DRUGS (9)
  1. BROMAZEPAM [Suspect]
     Active Substance: BROMAZEPAM
     Indication: Product used for unknown indication
     Dosage: UNK
     Route: 048
  2. RIVOTRIL [Concomitant]
     Active Substance: CLONAZEPAM
     Indication: Weight loss poor
     Dosage: UNK, (FOR ABOUT 3 YEARS)
     Route: 065
  3. RIVOTRIL [Concomitant]
     Active Substance: CLONAZEPAM
     Indication: Body dysmorphic disorder
  4. PROZAC [Concomitant]
     Active Substance: FLUOXETINE HYDROCHLORIDE
     Indication: Weight loss poor
     Dosage: UNK, (FOR ABOUT 3 YEARS)
     Route: 065
  5. PROZAC [Concomitant]
     Active Substance: FLUOXETINE HYDROCHLORIDE
     Indication: Body dysmorphic disorder
  6. LISDEXAMFETAMINE DIMESYLATE [Concomitant]
     Active Substance: LISDEXAMFETAMINE DIMESYLATE
     Indication: Weight loss poor
     Dosage: UNK, (FOR ABOUT 3 YEARS)
     Route: 065
  7. LISDEXAMFETAMINE DIMESYLATE [Concomitant]
     Active Substance: LISDEXAMFETAMINE DIMESYLATE
     Indication: Body dysmorphic disorder
  8. SEMAGLUTIDE [Concomitant]
     Active Substance: SEMAGLUTIDE
     Indication: Weight loss poor
     Dosage: UNK, (FOR ABOUT 3 YEARS)
     Route: 065
  9. SEMAGLUTIDE [Concomitant]
     Active Substance: SEMAGLUTIDE
     Indication: Body dysmorphic disorder

REACTIONS (2)
  - Serotonin syndrome [Fatal]
  - Prescription drug used without a prescription [Recovered/Resolved]

NARRATIVE: CASE EVENT DATE: 20210424
